FAERS Safety Report 14842996 (Version 1)
Quarter: 2018Q2

REPORT INFORMATION
  Report Type: Spontaneous
  Country: GB (occurrence: GB)
  Receive Date: 20180503
  Receipt Date: 20180503
  Transmission Date: 20180711
  Serious: Yes (Life-Threatening, Hospitalization, Disabling, Other)
  Sender: FDA-Public Use
  Company Number: GB-PURDUE PHARMA-GBR-2018-0055297

PATIENT
  Age: 50 Year
  Sex: Female

DRUGS (1)
  1. BUTRANS [Suspect]
     Active Substance: BUPRENORPHINE
     Indication: SPINAL PAIN
     Dosage: 20 MCG, Q1H
     Route: 062
     Dates: start: 20150605

REACTIONS (12)
  - Accidental overdose [Unknown]
  - Somnolence [Unknown]
  - Hyperphagia [Unknown]
  - Sleep disorder [Unknown]
  - Emotional disorder [Unknown]
  - Pneumonia aspiration [Unknown]
  - Depressed level of consciousness [Unknown]
  - Depressed mood [Unknown]
  - Product quality issue [Unknown]
  - Respiratory arrest [Unknown]
  - Nervous system disorder [Not Recovered/Not Resolved]
  - Asocial behaviour [Unknown]

NARRATIVE: CASE EVENT DATE: 201506
